FAERS Safety Report 5525834-1 (Version None)
Quarter: 2007Q4

REPORT INFORMATION
  Report Type: 
  Country: None (occurrence: None)
  Receive Date: 20071126
  Receipt Date: 20071122
  Transmission Date: 20080405
  Serious: Yes (Death, Other)
  Sender: FDA-Public Use
  Company Number: PHHY2007BR00567

PATIENT
  Age: 78 Year
  Sex: Female

DRUGS (2)
  1. SOTALOL HCL [Concomitant]
  2. FORASEQ [Suspect]
     Dates: start: 20040101

REACTIONS (3)
  - METASTASIS [None]
  - OVARIAN CANCER [None]
  - RESPIRATORY FAILURE [None]
